FAERS Safety Report 11705846 (Version 1)
Quarter: 2015Q4

REPORT INFORMATION
  Report Type: Spontaneous
  Country: US (occurrence: US)
  Receive Date: 20151106
  Receipt Date: 20151106
  Transmission Date: 20160304
  Serious: No
  Sender: FDA-Public Use
  Company Number: US-JNJFOC-20151007868

PATIENT
  Sex: Male
  Weight: 30.84 kg

DRUGS (1)
  1. CONCERTA [Suspect]
     Active Substance: METHYLPHENIDATE HYDROCHLORIDE
     Indication: AUTISM
     Route: 048
     Dates: start: 2015

REACTIONS (4)
  - Confusional state [Unknown]
  - Aggression [Unknown]
  - Drug dose omission [Unknown]
  - Product colour issue [Unknown]

NARRATIVE: CASE EVENT DATE: 2015
